FAERS Safety Report 6348761-9 (Version None)
Quarter: 2009Q3

REPORT INFORMATION
  Report Type: 
  Country: None (occurrence: None)
  Receive Date: 20090911
  Receipt Date: 20090907
  Transmission Date: 20100115
  Serious: Yes (Hospitalization)
  Sender: FDA-Public Use
  Company Number: FR-ASTRAZENECA-2009SE11653

PATIENT
  Age: 22064 Day
  Sex: Female

DRUGS (12)
  1. DIPRIVAN [Suspect]
     Indication: ANAESTHESIA
     Route: 042
     Dates: start: 20090616, end: 20090616
  2. SUPRANE [Suspect]
     Indication: ANAESTHESIA
     Route: 055
     Dates: start: 20090616, end: 20090616
  3. NIMBEX [Suspect]
     Indication: ANAESTHESIA
     Route: 042
     Dates: start: 20090616, end: 20090616
  4. HYPNOVEL [Suspect]
     Indication: ANAESTHESIA
     Route: 042
     Dates: start: 20090616, end: 20090616
  5. ULTIVA [Suspect]
     Indication: ANAESTHESIA
     Route: 042
     Dates: start: 20090616, end: 20090616
  6. DROLEPTAN [Suspect]
     Route: 042
     Dates: start: 20090616, end: 20090616
  7. KETAMINE PANPHARMA [Suspect]
     Indication: ANAESTHESIA
     Route: 042
     Dates: start: 20090616, end: 20090616
  8. EPHEDRINE AGUETTANT [Suspect]
     Route: 042
     Dates: start: 20090616, end: 20090616
  9. PROSTIGMIN BROMIDE [Suspect]
     Route: 042
     Dates: start: 20090616, end: 20090616
  10. ATROPINE SULFATE AGUETTANT [Suspect]
     Route: 042
     Dates: start: 20090616, end: 20090616
  11. ACETAMINOPHEN [Suspect]
     Indication: PAIN
     Route: 042
     Dates: start: 20090616, end: 20090617
  12. MORPHINE [Suspect]
     Indication: PAIN
     Route: 042
     Dates: start: 20090616, end: 20090616

REACTIONS (1)
  - CYTOLYTIC HEPATITIS [None]
